FAERS Safety Report 6535745-0 (Version None)
Quarter: 2010Q1

REPORT INFORMATION
  Report Type: 
  Country: None (occurrence: None)
  Receive Date: 20100106
  Receipt Date: 20091228
  Transmission Date: 20100710
  Serious: Yes (Hospitalization)
  Sender: FDA-Public Use
  Company Number: TCI2009A05064

PATIENT
  Age: 59 Year
  Sex: Male

DRUGS (3)
  1. LANSOPRAZOLE [Suspect]
     Indication: GASTRIC ULCER
     Dosage: PER ORAL
     Route: 048
     Dates: start: 20091101
  2. AMIODARONE HCL [Suspect]
     Dosage: 200 MG (200 MG,1 IN 1 D) PER ORAL
     Route: 048
     Dates: start: 20091101
  3. CARVEDILOL [Concomitant]

REACTIONS (10)
  - CARDIAC FAILURE [None]
  - CARDIOMEGALY [None]
  - CHOLECYSTITIS [None]
  - COMA HEPATIC [None]
  - CONGESTIVE CARDIOMYOPATHY [None]
  - DYSPNOEA EXERTIONAL [None]
  - HEPATITIS FULMINANT [None]
  - RENAL FAILURE [None]
  - SEPTIC SHOCK [None]
  - VENTRICULAR TACHYCARDIA [None]
